FAERS Safety Report 8957008 (Version 3)
Quarter: 2014Q2

REPORT INFORMATION
  Report Type: Report from Study
  Country: US (occurrence: US)
  Receive Date: 20121210
  Receipt Date: 20140603
  Transmission Date: 20141212
  Serious: Yes (Death, Other)
  Sender: FDA-Public Use
  Company Number: US-ROCHE-1161671

PATIENT
  Sex: 0

DRUGS (13)
  1. RITUXIMAB [Suspect]
     Indication: MANTLE CELL LYMPHOMA
     Route: 065
  2. RITUXIMAB [Suspect]
     Indication: NON-HODGKIN^S LYMPHOMA
  3. BENDAMUSTINE [Suspect]
     Indication: MANTLE CELL LYMPHOMA
     Route: 065
  4. BENDAMUSTINE [Suspect]
     Indication: NON-HODGKIN^S LYMPHOMA
  5. CYCLOPHOSPHAMIDE [Suspect]
     Indication: MANTLE CELL LYMPHOMA
     Route: 065
  6. CYCLOPHOSPHAMIDE [Suspect]
     Indication: NON-HODGKIN^S LYMPHOMA
  7. VINCRISTINE [Suspect]
     Indication: MANTLE CELL LYMPHOMA
     Route: 065
  8. VINCRISTINE [Suspect]
     Indication: NON-HODGKIN^S LYMPHOMA
  9. PREDNISONE [Suspect]
     Indication: MANTLE CELL LYMPHOMA
     Route: 065
  10. PREDNISONE [Suspect]
     Indication: NON-HODGKIN^S LYMPHOMA
  11. DOXORUBICIN [Suspect]
     Indication: MANTLE CELL LYMPHOMA
     Route: 065
  12. DOXORUBICIN [Suspect]
     Indication: NON-HODGKIN^S LYMPHOMA
  13. APREPITANT [Concomitant]

REACTIONS (29)
  - Pneumonia [Fatal]
  - Respiratory failure [Fatal]
  - Cardiac arrest [Fatal]
  - Septic shock [Fatal]
  - Chronic obstructive pulmonary disease [Fatal]
  - Lung neoplasm malignant [Fatal]
  - Acute respiratory failure [Fatal]
  - Sepsis [Fatal]
  - Lymphopenia [Unknown]
  - Neutropenia [Unknown]
  - Leukopenia [Unknown]
  - Thrombocytopenia [Unknown]
  - Anaemia [Unknown]
  - Infusion related reaction [Unknown]
  - Nausea [Unknown]
  - Fatigue [Unknown]
  - Constipation [Unknown]
  - Alopecia [Unknown]
  - Vomiting [Unknown]
  - Abdominal pain [Unknown]
  - Drug hypersensitivity [Unknown]
  - Infection [Unknown]
  - Hyperglycaemia [Unknown]
  - Back pain [Unknown]
  - Syncope [Unknown]
  - Dyspnoea [Unknown]
  - Rash [Unknown]
  - Neuropathy peripheral [Unknown]
  - Paraesthesia [Unknown]
